FAERS Safety Report 4761305-8 (Version None)
Quarter: 2005Q3

REPORT INFORMATION
  Report Type: 
  Country: None (occurrence: None)
  Receive Date: 20050901
  Receipt Date: 20050901
  Transmission Date: 20060218
  Serious: Yes (Life-Threatening, Hospitalization)
  Sender: FDA-Public Use
  Company Number: None

PATIENT
  Age: 62 Year
  Sex: Male
  Weight: 159 kg

DRUGS (12)
  1. LISINOPRIL [Suspect]
     Indication: HYPERTENSION
     Dosage: 5MG   QD   PO
     Route: 048
     Dates: start: 19980610, end: 20050719
  2. CETIRIZINE HCL [Concomitant]
  3. LOVASTATIN [Concomitant]
  4. ATENOLOL [Concomitant]
  5. GEMFIBROZIL [Concomitant]
  6. RANITIDINE [Concomitant]
  7. IPRATROPIUM BROMIDE [Concomitant]
  8. ASPIRIN [Concomitant]
  9. TERAZOSIN [Concomitant]
  10. DICLOFENAC [Concomitant]
  11. VERAPAMIL [Concomitant]
  12. PAROXETINE [Concomitant]

REACTIONS (2)
  - DYSPHONIA [None]
  - TONGUE OEDEMA [None]
